FAERS Safety Report 11008676 (Version 1)
Quarter: 2015Q2

REPORT INFORMATION
  Report Type: Spontaneous
  Country: None (occurrence: None)
  Receive Date: 20150409
  Receipt Date: 20150409
  Transmission Date: 20150821
  Serious: Yes (Hospitalization)
  Sender: FDA-Public Use
  Company Number: None

PATIENT
  Age: 72 Year
  Sex: Female
  Weight: 55 kg

DRUGS (22)
  1. CALCITRIOL. [Concomitant]
     Active Substance: CALCITRIOL
  2. DENOSUMAB [Suspect]
     Active Substance: DENOSUMAB
     Indication: OSTEOPOROSIS
     Route: 058
  3. COREG [Concomitant]
     Active Substance: CARVEDILOL
  4. DURAGESIC [Concomitant]
     Active Substance: FENTANYL
  5. SIMVASTATIN. [Concomitant]
     Active Substance: SIMVASTATIN
  6. AMLODIPINE [Concomitant]
     Active Substance: AMLODIPINE BESYLATE
  7. PROLIA [Concomitant]
     Active Substance: DENOSUMAB
  8. CA+D [Concomitant]
  9. PLAVIX [Concomitant]
     Active Substance: CLOPIDOGREL BISULFATE
  10. NEXIUM [Concomitant]
     Active Substance: ESOMEPRAZOLE MAGNESIUM
  11. LASIX [Concomitant]
     Active Substance: FUROSEMIDE
  12. VITAMIN D3 [Concomitant]
     Active Substance: CHOLECALCIFEROL
  13. BUPROPION [Concomitant]
     Active Substance: BUPROPION
  14. REGLAN [Concomitant]
     Active Substance: METOCLOPRAMIDE HYDROCHLORIDE
  15. ESTROGEN [Concomitant]
     Active Substance: ESTRONE\SUS SCROFA OVARY
  16. ADVAIR HFA [Concomitant]
     Active Substance: FLUTICASONE PROPIONATE\SALMETEROL XINAFOATE
  17. GABAPENTIN. [Concomitant]
     Active Substance: GABAPENTIN
  18. INSULIN [Concomitant]
     Active Substance: INSULIN NOS
  19. ALLOPURINOL. [Concomitant]
     Active Substance: ALLOPURINOL
  20. MIRTAXEPINE [Concomitant]
  21. URSODIOL. [Concomitant]
     Active Substance: URSODIOL
  22. SYNTHROID [Concomitant]
     Active Substance: LEVOTHYROXINE SODIUM

REACTIONS (2)
  - Hypocalcaemia [None]
  - Fatigue [None]

NARRATIVE: CASE EVENT DATE: 20150407
